FAERS Safety Report 8336944-8 (Version None)
Quarter: 2012Q2

REPORT INFORMATION
  Report Type: 
  Country: None (occurrence: None)
  Receive Date: 20120504
  Receipt Date: 20120221
  Transmission Date: 20120825
  Serious: No
  Sender: FDA-Public Use
  Company Number: US-GLAXOSMITHKLINE-A0967003A

PATIENT

DRUGS (2)
  1. UNKNOWN [Concomitant]
  2. HORIZANT [Suspect]
     Indication: RESTLESS LEGS SYNDROME
     Dosage: 600MG PER DAY
     Route: 048

REACTIONS (2)
  - NAUSEA [None]
  - DIZZINESS [None]
